FAERS Safety Report 5074690-7 (Version None)
Quarter: 2006Q3

REPORT INFORMATION
  Report Type: 
  Country: None (occurrence: None)
  Receive Date: 20060803
  Receipt Date: 20060717
  Transmission Date: 20061208
  Serious: Yes (Death, Other)
  Sender: FDA-Public Use
  Company Number: USA0510109807

PATIENT
  Age: 36 Year
  Sex: Male
  Weight: 88.9 kg

DRUGS (8)
  1. CYMBALTA [Suspect]
     Indication: PAIN
     Dosage: 60 MG, DAILY (1/D), UNK
     Dates: start: 20041228
  2. KLONOPIN [Concomitant]
  3. METHADONE HCL [Concomitant]
  4. BACLOFEN [Concomitant]
  5. AMITRIPTYLINE (AMITRIPTYLINE) [Concomitant]
  6. PEPCID [Concomitant]
  7. XANAX   /USA/ (ALPRAZOLAM) [Concomitant]
  8. XANAX     /USA/ (ALPRAZOLAM) [Concomitant]

REACTIONS (8)
  - COMPLETED SUICIDE [None]
  - DEATH OF FRIEND [None]
  - DEATH OF RELATIVE [None]
  - GUN SHOT WOUND [None]
  - HOMICIDAL IDEATION [None]
  - INJURY [None]
  - SOCIAL PROBLEM [None]
  - SURGERY [None]
